FAERS Safety Report 4362208-3 (Version None)
Quarter: 2004Q2

REPORT INFORMATION
  Report Type: 
  Country: None (occurrence: None)
  Receive Date: 20040517
  Receipt Date: 20040505
  Transmission Date: 20050107
  Serious: Yes (Hospitalization, Other)
  Sender: FDA-Public Use
  Company Number: 2004030470

PATIENT
  Age: 85 Year
  Sex: Male

DRUGS (4)
  1. AMLODIPINE [Suspect]
     Indication: ILL-DEFINED DISORDER
     Dosage: ORAL
     Route: 048
     Dates: end: 20040130
  2. NAFTIDROFURYL OXALATE (NAFTIDROFURYL OXALATE) [Suspect]
     Indication: ILL-DEFINED DISORDER
     Dosage: ORAL
     Route: 048
     Dates: end: 20040130
  3. GLIMEPIRIDE [Suspect]
     Indication: ILL-DEFINED DISORDER
     Dosage: ORAL
     Route: 048
     Dates: end: 20040130
  4. FUROSEMIDE [Suspect]
     Indication: ILL-DEFINED DISORDER
     Dosage: ORAL
     Route: 048
     Dates: start: 20040123

REACTIONS (10)
  - CHOLESTASIS [None]
  - DERMATOSIS [None]
  - EOSINOPHILIA [None]
  - INSOMNIA [None]
  - LYMPHOMA [None]
  - PARANEOPLASTIC SYNDROME [None]
  - PEMPHIGOID [None]
  - PRURITUS [None]
  - PULMONARY OEDEMA [None]
  - RENAL FAILURE [None]
